FAERS Safety Report 25208100 (Version 1)
Quarter: 2025Q2

REPORT INFORMATION
  Report Type: Spontaneous
  Country: US (occurrence: US)
  Receive Date: 20250417
  Receipt Date: 20250417
  Transmission Date: 20250716
  Serious: No
  Sender: BLUEPRINT MEDICINES
  Company Number: US-Blueprint Medicines Corporation-2025-AER-00746

PATIENT
  Sex: Male

DRUGS (1)
  1. AYVAKIT [Suspect]
     Active Substance: AVAPRITINIB
     Indication: Product used for unknown indication
     Route: 065

REACTIONS (3)
  - Gastrointestinal pain [Unknown]
  - Gastrointestinal disorder [Unknown]
  - Tryptase increased [Unknown]

NARRATIVE: CASE EVENT DATE: 20240901
